FAERS Safety Report 4863436-0 (Version None)
Quarter: 2005Q4

REPORT INFORMATION
  Report Type: 
  Country: None (occurrence: None)
  Receive Date: 20051222
  Receipt Date: 20050120
  Transmission Date: 20060501
  Serious: No
  Sender: FDA-Public Use
  Company Number: US-GLAXOSMITHKLINE-A0541527A

PATIENT
  Sex: Female

DRUGS (4)
  1. FLONASE [Suspect]
     Indication: RHINITIS
     Dosage: 2PUFF PER DAY
     Route: 045
  2. COREG [Concomitant]
  3. DIOVAN [Concomitant]
  4. ALTACE [Concomitant]

REACTIONS (1)
  - DRUG INEFFECTIVE [None]
